FAERS Safety Report 5244421-6 (Version None)
Quarter: 2007Q1

REPORT INFORMATION
  Report Type: 
  Country: None (occurrence: None)
  Receive Date: 20070222
  Receipt Date: 20070213
  Transmission Date: 20070707
  Serious: Yes (Death, Other)
  Sender: FDA-Public Use
  Company Number: US-PFIZER INC-2006129792

PATIENT
  Sex: Female
  Weight: 113.4 kg

DRUGS (1)
  1. CELEBREX [Suspect]
     Indication: ARTHRITIS
     Dates: start: 20010620, end: 20040727

REACTIONS (2)
  - CEREBROVASCULAR DISORDER [None]
  - MYOCARDIAL INFARCTION [None]
